FAERS Safety Report 4652131-9 (Version None)
Quarter: 2005Q2

REPORT INFORMATION
  Report Type: 
  Country: None (occurrence: None)
  Receive Date: 20050408
  Receipt Date: 20050223
  Transmission Date: 20051028
  Serious: No
  Sender: FDA-Public Use
  Company Number: 234149K04USA

PATIENT
  Age: 45 Year
  Sex: Female

DRUGS (1)
  1. REBIF [Suspect]
     Indication: MULTIPLE SCLEROSIS
     Dosage: 44 MCG, 3 IN 1 WEEKS, SUBCUTANEOUS; 8.8 MCG
     Route: 058
     Dates: start: 20040811

REACTIONS (6)
  - FATIGUE [None]
  - HEADACHE [None]
  - INJECTION SITE HAEMORRHAGE [None]
  - MENSTRUAL DISORDER [None]
  - NAUSEA [None]
  - PAIN [None]
